FAERS Safety Report 5372464-0 (Version None)
Quarter: 2007Q2

REPORT INFORMATION
  Report Type: 
  Country: None (occurrence: None)
  Receive Date: 20070625
  Receipt Date: 20070615
  Transmission Date: 20071010
  Serious: Yes (Other)
  Sender: FDA-Public Use
  Company Number: 163-21880-07060813

PATIENT
  Age: 13 Year
  Sex: Male
  Weight: 65 kg

DRUGS (2)
  1. REVLIMID [Suspect]
     Indication: SARCOMA
     Dosage: SEE IMAGE
     Route: 048
     Dates: start: 20070530, end: 20070610
  2. ACETAMINOPHEN [Concomitant]

REACTIONS (2)
  - HYPOCALCAEMIA [None]
  - URTICARIA [None]
